FAERS Safety Report 21587463 (Version 1)
Quarter: 2022Q4

REPORT INFORMATION
  Report Type: Spontaneous
  Country: US (occurrence: US)
  Receive Date: 20221114
  Receipt Date: 20221114
  Transmission Date: 20230113
  Serious: No
  Sender: FDA-Public Use
  Company Number: US-AMGEN-USASP2022194319

PATIENT
  Age: 2 Year
  Sex: Female
  Weight: 10 kg

DRUGS (4)
  1. EPOETIN ALFA [Suspect]
     Active Substance: ERYTHROPOIETIN
     Indication: Prophylaxis
     Dosage: 50 UNITS/KG, 3 TIMES/WK
     Route: 058
  2. EPOETIN ALFA [Suspect]
     Active Substance: ERYTHROPOIETIN
     Indication: Off label use
  3. CRYOPRECIPITATED ANTIHEMOPHILIC FACTOR (HUMAN) [Concomitant]
     Active Substance: CRYOPRECIPITATED ANTIHEMOPHILIC FACTOR (HUMAN)
     Dosage: 11 MILLILITRE PER KILOGRAM
  4. IRON SUCROSE [Concomitant]
     Active Substance: IRON SUCROSE
     Dosage: 4 MILLIGRAM/KILOGRAM, QD
     Route: 040

REACTIONS (1)
  - Off label use [Unknown]
